FAERS Safety Report 6166916-3 (Version None)
Quarter: 2009Q2

REPORT INFORMATION
  Report Type: 
  Country: None (occurrence: None)
  Receive Date: 20090423
  Receipt Date: 20090423
  Transmission Date: 20091009
  Serious: Yes (Other)
  Sender: FDA-Public Use
  Company Number: None

PATIENT
  Age: 50 Year
  Sex: Female

DRUGS (9)
  1. GEODON [Suspect]
     Dosage: 20MG X1 IM
     Route: 030
     Dates: start: 20090303
  2. GEODON [Suspect]
     Dosage: 20MG, 40MG 20MG AC, 40MG HS PO
     Route: 048
     Dates: start: 20090228, end: 20090302
  3. CELEXA [Concomitant]
  4. BENADRYL [Concomitant]
  5. ESTRADIOL [Concomitant]
  6. LAMOTRIGINE [Concomitant]
  7. OMEPRAZOLE [Concomitant]
  8. ROZEREM [Concomitant]
  9. TRAZODONE HCL [Concomitant]

REACTIONS (4)
  - EXTRAPYRAMIDAL DISORDER [None]
  - MUSCLE SPASMS [None]
  - MUSCLE TIGHTNESS [None]
  - MYALGIA [None]
